FAERS Safety Report 8976420 (Version 1)
Quarter: 2012Q4

REPORT INFORMATION
  Report Type: 
  Country: PH (occurrence: PH)
  Receive Date: 20121220
  Receipt Date: 20121220
  Transmission Date: 20130627
  Serious: Yes (Hospitalization, Other)
  Sender: FDA-Public Use
  Company Number: PH-JNJFOC-20121208092

PATIENT
  Age: 44 Year
  Sex: Male

DRUGS (7)
  1. XARELTO [Suspect]
     Indication: PRODUCT USED FOR UNKNOWN INDICATION
     Route: 048
  2. ISMN [Concomitant]
     Route: 065
  3. ATORVASTATIN [Concomitant]
     Route: 065
  4. CEREBROLYCIN [Concomitant]
     Route: 065
  5. ALDACTONE A [Concomitant]
     Route: 065
  6. CITICOLINE [Concomitant]
     Route: 065
  7. TRIMETAZIDINE [Concomitant]
     Route: 065

REACTIONS (3)
  - Cerebral haemorrhage [Unknown]
  - Acute coronary syndrome [Unknown]
  - Hypertension [Unknown]
